FAERS Safety Report 11616369 (Version 2)
Quarter: 2015Q4

REPORT INFORMATION
  Report Type: Spontaneous
  Country: BR (occurrence: BR)
  Receive Date: 20151009
  Receipt Date: 20151112
  Transmission Date: 20160304
  Serious: Yes (Other)
  Sender: FDA-Public Use
  Company Number: CHPA2015BR011636

PATIENT
  Sex: Female
  Weight: 77 kg

DRUGS (2)
  1. OTRIVIN [Suspect]
     Active Substance: XYLOMETAZOLINE
     Indication: NASAL CONGESTION
     Dosage: UNK
     Route: 061
     Dates: start: 201509
  2. OTRIVIN [Suspect]
     Active Substance: XYLOMETAZOLINE
     Indication: NASAL CONGESTION
     Dosage: UNK
     Route: 045
     Dates: start: 2005

REACTIONS (7)
  - Dyspnoea [Unknown]
  - Nasal congestion [Not Recovered/Not Resolved]
  - Insomnia [Unknown]
  - Suffocation feeling [Unknown]
  - Hypertension [Unknown]
  - Myopia [Unknown]
  - Drug ineffective [Unknown]

NARRATIVE: CASE EVENT DATE: 2006
